FAERS Safety Report 22101701 (Version 1)
Quarter: 2023Q1

REPORT INFORMATION
  Report Type: Other
  Country: CR (occurrence: None)
  Receive Date: 20230316
  Receipt Date: 20230316
  Transmission Date: 20230418
  Serious: Yes (Other)
  Sender: FDA-Public Use
  Company Number: CR-Inventia-000270

PATIENT
  Age: 78 Year
  Sex: Male

DRUGS (11)
  1. FLUOXETINE [Interacting]
     Active Substance: FLUOXETINE HYDROCHLORIDE
     Indication: Antidepressant discontinuation syndrome
     Dosage: 1-1-0
  2. OMEPRAZOLE [Interacting]
     Active Substance: OMEPRAZOLE
     Indication: Hypertension
     Dosage: 20 MG
  3. DIMENHYDRINATE [Interacting]
     Active Substance: DIMENHYDRINATE
     Indication: Nausea
     Dosage: EVERY 8 HOURS FOR 10 DAYS
  4. ENALAPRIL [Concomitant]
     Active Substance: ENALAPRIL
     Indication: Hypertension
     Dosage: 1-0-0
  5. ALUMINIUM HYDROXIDE,MAGNESIUM HYDROXIDE [Concomitant]
     Indication: Hypertension
     Dosage: 1-1-1
  6. FAMOTIDINE [Concomitant]
     Active Substance: FAMOTIDINE
     Indication: Dyspepsia
     Dosage: 40 MG, 0-0-1
  7. ACETYLSALICYLIC ACID,CITRIC ACID,SODIUM BICARBONATE [Concomitant]
     Indication: Dyspepsia
     Dosage: 1-0-0
  8. METFORMIN [Concomitant]
     Active Substance: METFORMIN HYDROCHLORIDE
     Indication: Diabetes mellitus
     Dosage: 500 MG, 1-0-0
  9. LOVASTATIN [Concomitant]
     Active Substance: LOVASTATIN
     Indication: Hypercholesterolaemia
     Dosage: 20 MG, 1-0-0
  10. HYDROXYUREA [Concomitant]
     Active Substance: HYDROXYUREA
     Indication: Thrombosis
     Dosage: 500, 0-1-0
  11. FLUOXETINE [Interacting]
     Active Substance: FLUOXETINE HYDROCHLORIDE
     Indication: Antidepressant discontinuation syndrome
     Dosage: 1-1-1

REACTIONS (7)
  - Cholinergic syndrome [Recovered/Resolved]
  - Serotonin syndrome [Recovered/Resolved]
  - Self-medication [Recovered/Resolved]
  - Drug interaction [Recovered/Resolved]
  - Intentional overdose [Recovered/Resolved]
  - Decreased appetite [Recovered/Resolved]
  - Amnesia [Recovered/Resolved]
